FAERS Safety Report 14286437 (Version 2)
Quarter: 2018Q1

REPORT INFORMATION
  Report Type: Report from Study
  Country: JP (occurrence: JP)
  Receive Date: 20171214
  Receipt Date: 20180108
  Transmission Date: 20180509
  Serious: Yes (Life-Threatening, Hospitalization)
  Sender: FDA-Public Use
  Company Number: JP-009507513-1710JPN014824

PATIENT
  Age: 64 Year
  Sex: Male
  Weight: 74.3 kg

DRUGS (9)
  1. PEMBROLIZUMAB. [Suspect]
     Active Substance: PEMBROLIZUMAB
     Indication: BLADDER CANCER
     Dosage: 200 MG, Q3W
     Route: 042
     Dates: start: 20170607, end: 20170915
  2. BROTIZOLAM [Concomitant]
     Active Substance: BROTIZOLAM
     Dosage: TOTAL DAILY DOSAGE: 0.25 MG, ONCE
     Route: 048
     Dates: start: 20171027, end: 20171027
  3. HEPARIN SODIUM. [Concomitant]
     Active Substance: HEPARIN SODIUM
     Indication: PROPHYLAXIS
     Dosage: TOTAL DAILY DOSAGE: 10000 U, FREQUENCY: CONTINUOUS
     Route: 042
     Dates: start: 20171027, end: 20171027
  4. PEMBROLIZUMAB. [Suspect]
     Active Substance: PEMBROLIZUMAB
     Dosage: 200 MG, Q3W
     Route: 042
     Dates: start: 20171006, end: 20171006
  5. SUNRYTHM [Concomitant]
     Active Substance: PILSICAINIDE HYDROCHLORIDE
     Indication: ARRHYTHMIA PROPHYLAXIS
     Dosage: 50 MG, ONCE
     Route: 042
     Dates: start: 20171027, end: 20171027
  6. AMLODIPINE [Concomitant]
     Active Substance: AMLODIPINE BESYLATE
     Dosage: TOTAL DAILY DOSE: 5 MG
     Route: 048
     Dates: start: 200310
  7. CARVEDILOL. [Concomitant]
     Active Substance: CARVEDILOL
     Dosage: 20 MG, QD
     Route: 048
     Dates: start: 200308
  8. CALCICOL (CALCIUM GLUCONATE) [Concomitant]
     Dosage: 10 ML, ONCE
     Route: 042
     Dates: start: 20171027, end: 20171027
  9. KAYEXALATE [Concomitant]
     Active Substance: SODIUM POLYSTYRENE SULFONATE
     Dosage: 10 G, ONCE
     Route: 048
     Dates: start: 20171027, end: 20171027

REACTIONS (2)
  - Pancreatic carcinoma [Not Recovered/Not Resolved]
  - Type 1 diabetes mellitus [Not Recovered/Not Resolved]

NARRATIVE: CASE EVENT DATE: 20171027
